FAERS Safety Report 9412539 (Version 2)
Quarter: 2013Q3

REPORT INFORMATION
  Report Type: Spontaneous
  Country: US (occurrence: None)
  Receive Date: 20130619
  Receipt Date: 20130815
  Transmission Date: 20140515
  Serious: Yes (Life-Threatening, Hospitalization, Other)
  Sender: FDA-Public Use
  Company Number: ADR-2013-00636

PATIENT
  Sex: Male

DRUGS (2)
  1. BACLOFEN INTRATHECAL [Suspect]
     Indication: MUSCLE SPASMS
  2. MORPHINE [Suspect]
     Indication: BACK PAIN
     Dosage: 13.017 MG/DAY

REACTIONS (18)
  - Overdose [None]
  - Nausea [None]
  - Vomiting [None]
  - Sedation [None]
  - Mental status changes [None]
  - Depressed level of consciousness [None]
  - Agitation [None]
  - Pain [None]
  - Atrial fibrillation [None]
  - Respiratory rate decreased [None]
  - Oxygen saturation decreased [None]
  - Depressed level of consciousness [None]
  - Snoring [None]
  - Insomnia [None]
  - Confusional state [None]
  - Hypoxia [None]
  - Unresponsive to stimuli [None]
  - Sleep apnoea syndrome [None]
